FAERS Safety Report 10458455 (Version 1)
Quarter: 2014Q3

REPORT INFORMATION
  Report Type: Spontaneous
  Country: US (occurrence: None)
  Receive Date: 20140916
  Receipt Date: 20140916
  Transmission Date: 20150326
  Serious: No
  Sender: FDA-Public Use
  Company Number: None

PATIENT
  Age: 68 Year
  Sex: Female
  Weight: 58.97 kg

DRUGS (1)
  1. CIPRO [Suspect]
     Active Substance: CIPROFLOXACIN HYDROCHLORIDE
     Indication: ANIMAL BITE
     Dates: start: 20090910, end: 20090915

REACTIONS (4)
  - Balance disorder [None]
  - Similar reaction on previous exposure to drug [None]
  - Pain in extremity [None]
  - Tendonitis [None]

NARRATIVE: CASE EVENT DATE: 20090910
